FAERS Safety Report 11899371 (Version 2)
Quarter: 2016Q1

REPORT INFORMATION
  Report Type: Spontaneous
  Country: US (occurrence: US)
  Receive Date: 20160108
  Receipt Date: 20160212
  Transmission Date: 20160526
  Serious: No
  Sender: FDA-Public Use
  Company Number: US-PFIZER INC-2015447765

PATIENT
  Age: 86 Year
  Sex: Female

DRUGS (4)
  1. TOVIAZ [Suspect]
     Active Substance: FESOTERODINE FUMARATE
     Dosage: 8 MG, 1X/DAY
  2. CAFFEINE. [Concomitant]
     Active Substance: CAFFEINE
  3. LUCENTIS [Concomitant]
     Active Substance: RANIBIZUMAB
     Indication: EYE HAEMORRHAGE
     Dosage: INJECTIONS IN LEFT EYE
     Dates: start: 2014
  4. TOVIAZ [Suspect]
     Active Substance: FESOTERODINE FUMARATE
     Indication: HYPERTONIC BLADDER
     Dosage: 4 MG, 2X/DAY

REACTIONS (8)
  - Wrong technique in product usage process [Unknown]
  - Sleep disorder [Not Recovered/Not Resolved]
  - Visual impairment [Unknown]
  - Dry mouth [Recovering/Resolving]
  - Product quality issue [Unknown]
  - Chest discomfort [Unknown]
  - Urinary incontinence [Not Recovered/Not Resolved]
  - Drug effect decreased [Unknown]
